FAERS Safety Report 4426703-0 (Version None)
Quarter: 2004Q3

REPORT INFORMATION
  Report Type: 
  Country: None (occurrence: None)
  Receive Date: 20040812
  Receipt Date: 20040812
  Transmission Date: 20050211
  Serious: Yes (Life-Threatening)
  Sender: FDA-Public Use
  Company Number: None

PATIENT
  Age: 200 Year
  Sex: Female

DRUGS (1)
  1. PLAVIX [Suspect]
     Dosage: DAILY

REACTIONS (1)
  - POST PROCEDURAL HAEMORRHAGE [None]
